FAERS Safety Report 9163688 (Version 2)
Quarter: 2013Q2

REPORT INFORMATION
  Report Type: Spontaneous
  Country: US (occurrence: US)
  Receive Date: 20130314
  Receipt Date: 20130506
  Transmission Date: 20140414
  Serious: No
  Sender: FDA-Public Use
  Company Number: US-B.I. PHARMACEUTICALS,INC./RIDGEFIELD-2013-BI-06461BP

PATIENT
  Age: 77 Year
  Sex: Male
  Weight: 95 kg

DRUGS (3)
  1. SPIRIVA [Suspect]
     Indication: CHRONIC OBSTRUCTIVE PULMONARY DISEASE
     Dosage: 18 MCG
     Route: 055
     Dates: start: 201209
  2. ADVAIR [Concomitant]
  3. VENTOLIN [Concomitant]

REACTIONS (2)
  - Respiration abnormal [Recovered/Resolved]
  - Product quality issue [Recovered/Resolved]
